FAERS Safety Report 17468826 (Version 4)
Quarter: 2020Q4

REPORT INFORMATION
  Report Type: Spontaneous
  Country: TW (occurrence: TW)
  Receive Date: 20200227
  Receipt Date: 20201020
  Transmission Date: 20210113
  Serious: Yes (Death, Other)
  Sender: FDA-Public Use
  Company Number: TW-PFIZER INC-2020081599

PATIENT
  Age: 67 Year
  Sex: Female

DRUGS (6)
  1. IBRANCE [Suspect]
     Active Substance: PALBOCICLIB
     Dosage: 100 MG, CYCLIC (1 CAPSULE PER DAY, 2 WEEKS ON AND 1 WEEK OFF)
     Route: 048
     Dates: start: 20191113
  2. SODIUM CHLORIDE. [Concomitant]
     Active Substance: SODIUM CHLORIDE
     Dosage: 100 ML
     Route: 041
  3. CHLORPHENIRAMINE [CHLORPHENAMINE] [Concomitant]
     Active Substance: CHLORPHENIRAMINE
     Dosage: 1 DF
  4. IBRANCE [Suspect]
     Active Substance: PALBOCICLIB
     Indication: BREAST CANCER FEMALE
     Dosage: 125 MG, DAILY, CYCLIC ( 3 WEEKS ON AND 1 WEEK OFF),
     Route: 048
     Dates: start: 20191009, end: 2019
  5. FEMARA [Concomitant]
     Active Substance: LETROZOLE
     Indication: BREAST CANCER FEMALE
     Dosage: 2.5 MG, 1X/DAY
     Route: 048
  6. DEXAMETHASONE. [Concomitant]
     Active Substance: DEXAMETHASONE
     Dosage: 5 MG

REACTIONS (5)
  - Platelet count decreased [Unknown]
  - Death [Fatal]
  - White blood cell count decreased [Unknown]
  - Haemoglobin decreased [Unknown]
  - Diarrhoea [Unknown]

NARRATIVE: CASE EVENT DATE: 20191211
